FAERS Safety Report 9535076 (Version 1)
Quarter: 2013Q3

REPORT INFORMATION
  Report Type: Spontaneous
  Country: DE (occurrence: DE)
  Receive Date: 20130918
  Receipt Date: 20130918
  Transmission Date: 20140515
  Serious: Yes (Other)
  Sender: FDA-Public Use
  Company Number: DE-MYLANLABS-2013S1020154

PATIENT
  Sex: Male

DRUGS (4)
  1. PARACETAMOL [Suspect]
     Route: 063
  2. IBUPROFEN [Suspect]
     Route: 063
  3. THEOPHYLLIN [Suspect]
     Route: 063
  4. CIPROFLOXACIN [Suspect]
     Route: 063

REACTIONS (2)
  - Hepatobiliary disease [Unknown]
  - Exposure during breast feeding [Unknown]
